FAERS Safety Report 10370157 (Version 1)
Quarter: 2014Q3

REPORT INFORMATION
  Report Type: Spontaneous
  Country: US (occurrence: None)
  Receive Date: 20140806
  Receipt Date: 20140806
  Transmission Date: 20150326
  Serious: Yes (Hospitalization)
  Sender: FDA-Public Use
  Company Number: None

PATIENT
  Age: 59 Year
  Sex: Male
  Weight: 120 kg

DRUGS (1)
  1. CISPLATIN. [Suspect]
     Active Substance: CISPLATIN
     Dosage: 243 MG TOTAL DOSE ADMINISTERED?INFUSION BEGAN ON 7/15/14 AT 1350, STOPPED AT 1615 DUE TO AES
     Dates: start: 20140715

REACTIONS (15)
  - Dyspnoea [None]
  - Hypoxia [None]
  - Toxicity to various agents [None]
  - Tachycardia [None]
  - Abdominal pain upper [None]
  - Peripancreatic fluid collection [None]
  - Pancreatitis [None]
  - Infusion related reaction [None]
  - Renal failure acute [None]
  - Splenic vein thrombosis [None]
  - Chest discomfort [None]
  - Renal tubular disorder [None]
  - Gastrointestinal perforation [None]
  - Abscess [None]
  - Pain [None]

NARRATIVE: CASE EVENT DATE: 20140715
